FAERS Safety Report 14742190 (Version 3)
Quarter: 2018Q3

REPORT INFORMATION
  Report Type: Spontaneous
  Country: FI (occurrence: FI)
  Receive Date: 20180410
  Receipt Date: 20180817
  Transmission Date: 20181010
  Serious: Yes (Hospitalization, Other)
  Sender: FDA-Public Use
  Company Number: FI-ELI_LILLY_AND_COMPANY-FI201804001144

PATIENT
  Age: 42 Year
  Sex: Male

DRUGS (2)
  1. ZYPADHERA [Suspect]
     Active Substance: OLANZAPINE PAMOATE
     Indication: PRODUCT USED FOR UNKNOWN INDICATION
     Dosage: 405 MG, 2/M
     Route: 030
     Dates: start: 20140122
  2. MELATONIN [Concomitant]
     Active Substance: MELATONIN
     Indication: PRODUCT USED FOR UNKNOWN INDICATION
     Dosage: 6 MG, DAILY (IN THE EVENING)
     Route: 065

REACTIONS (13)
  - Speech disorder [Unknown]
  - Post-injection delirium sedation syndrome [Unknown]
  - Confusional state [Unknown]
  - Restlessness [Unknown]
  - Aggression [Unknown]
  - Heart rate increased [Unknown]
  - Hepatitis C [Unknown]
  - Hypertension [Unknown]
  - Disorientation [Unknown]
  - Inappropriate schedule of drug administration [Unknown]
  - Drug dependence [Unknown]
  - Fatigue [Unknown]
  - Overdose [Unknown]

NARRATIVE: CASE EVENT DATE: 20180329
